FAERS Safety Report 5967613-7 (Version None)
Quarter: 2008Q4

REPORT INFORMATION
  Report Type: 
  Country: None (occurrence: None)
  Receive Date: 20081126
  Receipt Date: 20081114
  Transmission Date: 20090506
  Serious: Yes (Hospitalization, Other)
  Sender: FDA-Public Use
  Company Number: PHHY2008BR28556

PATIENT
  Age: 64 Year
  Sex: Female

DRUGS (3)
  1. TRILEPTAL [Suspect]
     Indication: CONVULSION
     Dosage: 300 MG, UNK
     Route: 048
     Dates: start: 20040101
  2. PHENOBARBITAL TAB [Concomitant]
     Indication: CONVULSION
     Dosage: 100 MG, ONE OR TWO TAB DAILY
     Route: 048
     Dates: start: 20030101
  3. AMITRIL [Concomitant]
     Indication: POOR QUALITY SLEEP
     Dosage: 25 MG, ONE TAB AT NIGHT
     Dates: start: 20050101

REACTIONS (17)
  - BLOOD PRESSURE INCREASED [None]
  - BRAIN NEOPLASM [None]
  - BRAIN OPERATION [None]
  - DEPRESSION [None]
  - DYSPHASIA [None]
  - FALL [None]
  - FRACTURE MALUNION [None]
  - HUMERUS FRACTURE [None]
  - HYPOTENSION [None]
  - IMMOBILISATION PROLONGED [None]
  - MUSCLE RIGIDITY [None]
  - OSTEOPOROSIS [None]
  - PAIN [None]
  - PARTIAL SEIZURES [None]
  - STRESS [None]
  - SURGERY [None]
  - TREMOR [None]
